FAERS Safety Report 9072598 (Version 1)
Quarter: 2013Q1

REPORT INFORMATION
  Report Type: Report from Study
  Country: US (occurrence: US)
  Receive Date: 20130129
  Receipt Date: 20130129
  Transmission Date: 20140127
  Serious: No
  Sender: FDA-Public Use
  Company Number: US-ABBOTT-12P-163-0923621-00

PATIENT
  Age: 26 Year
  Sex: Male

DRUGS (3)
  1. HUMIRA 40 MG/0.8 ML PEN [Suspect]
     Indication: CROHN^S DISEASE
     Dates: start: 201201
  2. AZATHIOPRINE [Concomitant]
     Indication: CROHN^S DISEASE
  3. LIALDA [Concomitant]
     Indication: CROHN^S DISEASE

REACTIONS (2)
  - Drug dose omission [Unknown]
  - Crohn^s disease [Unknown]
